FAERS Safety Report 10029352 (Version 4)
Quarter: 2014Q1

REPORT INFORMATION
  Report Type: Report from Study
  Country: FR (occurrence: FR)
  Receive Date: 20140321
  Receipt Date: 20140331
  Transmission Date: 20141002
  Serious: Yes (Hospitalization)
  Sender: FDA-Public Use
  Company Number: PHHO2014FR002106

PATIENT
  Sex: 0

DRUGS (10)
  1. AFINITOR [Suspect]
     Indication: NEUROENDOCRINE CARCINOMA
     Dosage: 10 MG, BID
     Route: 048
     Dates: start: 20140106, end: 20140130
  2. AFINITOR [Suspect]
     Dosage: 5 MG, QD
     Route: 048
     Dates: start: 20140131, end: 20140202
  3. RADIOTHERAPY [Suspect]
  4. ABSTRAL [Concomitant]
     Indication: BACK PAIN
     Dosage: 100 UG PER DAY
     Route: 048
     Dates: start: 201308, end: 20140206
  5. ABSTRAL [Concomitant]
     Indication: CHEST PAIN
  6. DUROGESIC [Concomitant]
     Indication: BACK PAIN
     Dosage: 100 UG, Q72H
     Route: 003
     Dates: start: 20130730
  7. DUROGESIC [Concomitant]
     Indication: CHEST PAIN
  8. LEVOTHYROX [Concomitant]
     Indication: HYPOTHYROIDISM
     Dosage: 50 UG PER DAY
     Dates: start: 2008
  9. LAROXYL [Concomitant]
     Indication: BACK PAIN
     Dosage: UNK
     Dates: start: 20140106, end: 20140206
  10. LAROXYL [Concomitant]
     Indication: CHEST PAIN

REACTIONS (4)
  - Dysphagia [Recovered/Resolved]
  - Mucosal inflammation [Recovered/Resolved]
  - Pulmonary embolism [Not Recovered/Not Resolved]
  - Oesophagitis [Recovered/Resolved]
